FAERS Safety Report 22191850 (Version 1)
Quarter: 2023Q2

REPORT INFORMATION
  Report Type: Spontaneous
  Country: US (occurrence: US)
  Receive Date: 20230410
  Receipt Date: 20230410
  Transmission Date: 20230721
  Serious: No
  Sender: FDA-Public Use
  Company Number: US-BIOGEN-2023BI01198044

PATIENT
  Sex: Female

DRUGS (1)
  1. VUMERITY [Suspect]
     Active Substance: DIROXIMEL FUMARATE
     Indication: Multiple sclerosis
     Route: 050

REACTIONS (6)
  - Heart rate irregular [Unknown]
  - Pain [Unknown]
  - Multiple allergies [Unknown]
  - Oral herpes [Unknown]
  - Illness [Unknown]
  - Hypersensitivity [Unknown]
